FAERS Safety Report 22325780 (Version 3)
Quarter: 2023Q4

REPORT INFORMATION
  Report Type: Spontaneous
  Country: US (occurrence: US)
  Receive Date: 20230516
  Receipt Date: 20231109
  Transmission Date: 20240109
  Serious: No
  Sender: FDA-Public Use
  Company Number: US-ANIPHARMA-2023-US-003940

PATIENT
  Age: 83 Year
  Sex: Female

DRUGS (6)
  1. CORTICOTROPIN [Suspect]
     Active Substance: CORTICOTROPIN
     Indication: Nephrotic syndrome
     Dosage: INJECT 80 UNITS (1ML) SUBCUTANEOUSLY TWO TIMES A WEEK
     Route: 058
     Dates: start: 202302
  2. TRULICITY [Concomitant]
     Active Substance: DULAGLUTIDE
     Route: 065
  3. METFORMIN [Concomitant]
     Active Substance: METFORMIN HYDROCHLORIDE
     Route: 065
  4. ESOMEPRAZOLE MAGNESIUM [Concomitant]
     Active Substance: ESOMEPRAZOLE\ESOMEPRAZOLE MAGNESIUM\ESOMEPRAZOLE MAGNESIUM DIHYDRATE
     Route: 065
  5. FIASP [Concomitant]
     Active Substance: INSULIN ASPART
  6. GLIPIZIDE [Concomitant]
     Active Substance: GLIPIZIDE
     Route: 065

REACTIONS (4)
  - Blood glucose increased [Unknown]
  - Diarrhoea [Unknown]
  - Asthenia [Unknown]
  - Contraindicated product administered [Not Recovered/Not Resolved]

NARRATIVE: CASE EVENT DATE: 20230201
